FAERS Safety Report 6619259-5 (Version None)
Quarter: 2010Q1

REPORT INFORMATION
  Report Type: 
  Country: None (occurrence: None)
  Receive Date: 20100303
  Receipt Date: 20100223
  Transmission Date: 20100710
  Serious: Yes (Life-Threatening, Disabling)
  Sender: FDA-Public Use
  Company Number: WAES 0112USA02604

PATIENT
  Age: 24 Year
  Sex: Male

DRUGS (22)
  1. CRIXIVAN [Suspect]
     Indication: HIV INFECTION
     Dosage: 800 MG/DAILY, PO
     Route: 048
     Dates: start: 20000318, end: 20000524
  2. EFAVIRENZ [Suspect]
     Indication: HIV INFECTION
     Dosage: 600 MG/DAILY, PO; 600 MG/DAILY, PO
     Route: 048
     Dates: start: 20000724, end: 20000725
  3. EFAVIRENZ [Suspect]
     Indication: HIV INFECTION
     Dosage: 600 MG/DAILY, PO; 600 MG/DAILY, PO
     Route: 048
     Dates: start: 20000925, end: 20001002
  4. VIDEX [Suspect]
     Indication: HIV INFECTION
     Dosage: 125 MG/BID, PO; 300 MG/DAILY, PO
     Route: 048
     Dates: start: 19941219, end: 19970307
  5. VIDEX [Suspect]
     Indication: HIV INFECTION
     Dosage: 125 MG/BID, PO; 300 MG/DAILY, PO
     Route: 048
     Dates: start: 19970308, end: 20010721
  6. INVIRASE [Suspect]
     Indication: HIV INFECTION
     Dosage: 400 MG/BID, PO; 800 MG/DAILY, PO
     Route: 048
     Dates: start: 19990619, end: 20000318
  7. INVIRASE [Suspect]
     Indication: HIV INFECTION
     Dosage: 400 MG/BID, PO; 800 MG/DAILY, PO
     Route: 048
     Dates: start: 20000524, end: 20001224
  8. NORVIR [Suspect]
     Indication: HIV INFECTION
     Dosage: 400 MG/BID, PO; 800 MG/DAILY, PO; 100 MG/DAILY, PO; 200 MG DAILY, PO,
     Route: 048
     Dates: start: 19990619, end: 19991031
  9. NORVIR [Suspect]
     Indication: HIV INFECTION
     Dosage: 400 MG/BID, PO; 800 MG/DAILY, PO; 100 MG/DAILY, PO; 200 MG DAILY, PO,
     Route: 048
     Dates: start: 19991101, end: 20001224
  10. NORVIR [Suspect]
     Indication: HIV INFECTION
     Dosage: 400 MG/BID, PO; 800 MG/DAILY, PO; 100 MG/DAILY, PO; 200 MG DAILY, PO,
     Route: 048
     Dates: start: 20050425, end: 20080919
  11. NORVIR [Suspect]
     Indication: HIV INFECTION
     Dosage: 400 MG/BID, PO; 800 MG/DAILY, PO; 100 MG/DAILY, PO; 200 MG DAILY, PO,
     Route: 048
     Dates: start: 20080920
  12. ZIAGEN [Suspect]
     Indication: HIV INFECTION
     Dosage: 600 MG/DAILY, PO; 600 MG/DAILY, PO
     Route: 048
     Dates: start: 20000724, end: 20000725
  13. ZIAGEN [Suspect]
     Indication: HIV INFECTION
     Dosage: 600 MG/DAILY, PO; 600 MG/DAILY, PO
     Route: 048
     Dates: start: 20011020, end: 20011027
  14. KALETRA [Suspect]
     Indication: HIV INFECTION
     Dosage: 6 DOSE/DAILY, PO
     Route: 048
     Dates: start: 20001225, end: 20040424
  15. ZERIT [Suspect]
     Indication: HIV INFECTION
     Dosage: 30 MG/BID, PO; 40 MG/BID, PO; 30 MG/BID, PO; 40 MG/BID, PO; 80 MG/DAILY, PO
     Route: 048
     Dates: start: 19970825, end: 19980227
  16. ZERIT [Suspect]
     Indication: HIV INFECTION
     Dosage: 30 MG/BID, PO; 40 MG/BID, PO; 30 MG/BID, PO; 40 MG/BID, PO; 80 MG/DAILY, PO
     Route: 048
     Dates: start: 19980228, end: 19980803
  17. ZERIT [Suspect]
     Indication: HIV INFECTION
     Dosage: 30 MG/BID, PO; 40 MG/BID, PO; 30 MG/BID, PO; 40 MG/BID, PO; 80 MG/DAILY, PO
     Route: 048
     Dates: start: 19980804, end: 19981109
  18. ZERIT [Suspect]
     Indication: HIV INFECTION
     Dosage: 30 MG/BID, PO; 40 MG/BID, PO; 30 MG/BID, PO; 40 MG/BID, PO; 80 MG/DAILY, PO
     Route: 048
     Dates: start: 19981110, end: 19990619
  19. ZERIT [Suspect]
     Indication: HIV INFECTION
     Dosage: 30 MG/BID, PO; 40 MG/BID, PO; 30 MG/BID, PO; 40 MG/BID, PO; 80 MG/DAILY, PO
     Route: 048
     Dates: start: 20001225, end: 20011020
  20. VIDEX EC [Suspect]
     Indication: HIV INFECTION
     Dosage: 400 MG/DAILY, PO
     Route: 048
     Dates: start: 20010722, end: 20040514
  21. EPIVIR [Suspect]
     Indication: HIV INFECTION
     Dosage: 300 MG/DAILY, PO
     Route: 048
     Dates: start: 20040515, end: 20080919
  22. FACTOR VIII [Concomitant]

REACTIONS (3)
  - DIZZINESS [None]
  - PALPITATIONS [None]
  - PULMONARY HYPERTENSION [None]
